FAERS Safety Report 8983415 (Version 2)
Quarter: 2013Q1

REPORT INFORMATION
  Report Type: Spontaneous
  Country: JP (occurrence: JP)
  Receive Date: 20121224
  Receipt Date: 20130103
  Transmission Date: 20140127
  Serious: Yes (Death, Hospitalization)
  Sender: FDA-Public Use
  Company Number: JP-BRISTOL-MYERS SQUIBB COMPANY-17224452

PATIENT
  Age: 6 Decade
  Sex: Female

DRUGS (2)
  1. TAXOL INJ [Suspect]
     Indication: UTERINE CANCER
     Dosage: NUMBER OF DOSES; 4
     Route: 041
  2. PARAPLATIN [Suspect]
     Indication: UTERINE CANCER
     Route: 041

REACTIONS (1)
  - Gastrointestinal haemorrhage [Fatal]
